FAERS Safety Report 5794086-X (Version None)
Quarter: 2008Q2

REPORT INFORMATION
  Report Type: 
  Country: None (occurrence: None)
  Receive Date: 20080625
  Receipt Date: 20080610
  Transmission Date: 20081010
  Serious: No
  Sender: FDA-Public Use
  Company Number: 2008S1008775

PATIENT
  Age: 25 Year
  Sex: Female

DRUGS (2)
  1. AMNESTEEM [Suspect]
     Dosage: 40 MG; TWICE A DAY; ORAL
     Route: 048
     Dates: start: 20071206, end: 20080517
  2. ORAL CONTRACEPTIVE NOS [Concomitant]

REACTIONS (1)
  - PREGNANCY TEST FALSE POSITIVE [None]
